FAERS Safety Report 22242691 (Version 1)
Quarter: 2023Q2

REPORT INFORMATION
  Report Type: Spontaneous
  Country: US (occurrence: None)
  Receive Date: 20230421
  Receipt Date: 20230421
  Transmission Date: 20230721
  Serious: Yes (Disabling)
  Sender: FDA-Public Use
  Company Number: None

PATIENT
  Age: 34 Year
  Sex: Male
  Weight: 85.5 kg

DRUGS (1)
  1. FINASTERIDE [Suspect]
     Active Substance: FINASTERIDE
     Indication: Alopecia
     Dates: start: 20210412, end: 20211124

REACTIONS (13)
  - Brain fog [None]
  - Libido decreased [None]
  - Hot flush [None]
  - Feeling abnormal [None]
  - Gastric disorder [None]
  - Abdominal distension [None]
  - Gastritis [None]
  - Head discomfort [None]
  - Headache [None]
  - Dysarthria [None]
  - Dysphemia [None]
  - Thinking abnormal [None]
  - Memory impairment [None]

NARRATIVE: CASE EVENT DATE: 20211124
